FAERS Safety Report 6479161-9 (Version None)
Quarter: 2009Q4

REPORT INFORMATION
  Report Type: 
  Country: None (occurrence: None)
  Receive Date: 20091207
  Receipt Date: 20090317
  Transmission Date: 20100525
  Serious: No
  Sender: FDA-Public Use
  Company Number: US-AMGEN-KDL334013

PATIENT
  Sex: Female

DRUGS (8)
  1. ENBREL [Suspect]
     Indication: DERMATITIS ATOPIC
     Route: 058
     Dates: start: 20090202, end: 20090317
  2. SEREVENT [Concomitant]
  3. TYLENOL (CAPLET) [Concomitant]
  4. CALCIUM [Concomitant]
  5. ALBUTEROL [Concomitant]
  6. EPINEPHRINE [Concomitant]
  7. ZYRTEC [Concomitant]
  8. SINGULAIR [Concomitant]

REACTIONS (6)
  - ASTHMA [None]
  - INJECTION SITE ERYTHEMA [None]
  - INJECTION SITE PRURITUS [None]
  - INJECTION SITE RECALL REACTION [None]
  - PRODUCTIVE COUGH [None]
  - ULCER [None]
